FAERS Safety Report 6542010-4 (Version None)
Quarter: 2010Q1

REPORT INFORMATION
  Report Type: 
  Country: None (occurrence: None)
  Receive Date: 20100119
  Receipt Date: 20100108
  Transmission Date: 20100710
  Serious: Yes (Other)
  Sender: FDA-Public Use
  Company Number: US-ROCHE-679396

PATIENT
  Sex: Female

DRUGS (2)
  1. AVASTIN [Suspect]
     Indication: GLIOBLASTOMA
     Route: 065
     Dates: start: 20090401, end: 20090801
  2. AVASTIN [Suspect]
     Dosage: ON AND OFF THERAPY
     Route: 065
     Dates: start: 20090801, end: 20100101

REACTIONS (4)
  - DEPRESSION [None]
  - HEMIPARESIS [None]
  - INFECTION [None]
  - PROTEINURIA [None]
